FAERS Safety Report 26000445 (Version 1)
Quarter: 2025Q4

REPORT INFORMATION
  Report Type: Spontaneous
  Country: US (occurrence: US)
  Receive Date: 20251105
  Receipt Date: 20251105
  Transmission Date: 20260117
  Serious: No
  Sender: ANI
  Company Number: US-ANIPHARMA-2025-US-038205

PATIENT
  Age: 65 Year
  Sex: Male

DRUGS (15)
  1. LISINOPRIL [Concomitant]
     Active Substance: LISINOPRIL
  2. AMLODIPINE BESYLATE [Concomitant]
     Active Substance: AMLODIPINE BESYLATE
  3. MAGNESIUM ELEMENTAL [Concomitant]
  4. OMEGA-3 ACIDS [Concomitant]
     Active Substance: OMEGA-3 FATTY ACIDS
  5. VITAMINS [Concomitant]
     Active Substance: VITAMINS
  6. MULTIPLE VITAMINS/MINE [Concomitant]
  7. REPATHA [Concomitant]
     Active Substance: EVOLOCUMAB
  8. METOPROLOL TARTRATE [Concomitant]
     Active Substance: METOPROLOL TARTRATE
  9. TORSEMIDE [Concomitant]
     Active Substance: TORSEMIDE
  10. TACROLIMUS [Concomitant]
     Active Substance: TACROLIMUS
  11. OMEPRAZOLE [Concomitant]
     Active Substance: OMEPRAZOLE
  12. JARDIANCE [Concomitant]
     Active Substance: EMPAGLIFLOZIN
  13. ONDANSETRON HYDROCHLORIDE [Concomitant]
     Active Substance: ONDANSETRON HYDROCHLORIDE
  14. METOLAZONE [Concomitant]
     Active Substance: METOLAZONE
  15. CORTICOTROPIN [Suspect]
     Active Substance: CORTICOTROPIN
     Indication: Nephrotic syndrome
     Dosage: 80 UNITS
     Route: 058

REACTIONS (3)
  - Constipation [Not Recovered/Not Resolved]
  - Feeling abnormal [Unknown]
  - Somnolence [Unknown]
